FAERS Safety Report 24236802 (Version 1)
Quarter: 2024Q3

REPORT INFORMATION
  Report Type: Spontaneous
  Country: US (occurrence: US)
  Receive Date: 20240822
  Receipt Date: 20240822
  Transmission Date: 20241017
  Serious: No
  Sender: AUROBINDO
  Company Number: US-AUROBINDO-AUR-APL-2024-031089

PATIENT
  Sex: Female

DRUGS (1)
  1. BELEODAQ [Suspect]
     Active Substance: BELINOSTAT
     Indication: Peripheral T-cell lymphoma unspecified
     Dosage: UNK
     Route: 042

REACTIONS (8)
  - Diarrhoea [Unknown]
  - Dehydration [Unknown]
  - Nasal dryness [Unknown]
  - Tooth disorder [Unknown]
  - Tongue discolouration [Unknown]
  - Plicated tongue [Unknown]
  - Ocular hyperaemia [Unknown]
  - Rhinalgia [Unknown]
